FAERS Safety Report 7030903-3 (Version None)
Quarter: 2010Q4

REPORT INFORMATION
  Report Type: 
  Country: None (occurrence: None)
  Receive Date: 20101006
  Receipt Date: 20100927
  Transmission Date: 20110411
  Serious: Yes (Hospitalization, Other)
  Sender: FDA-Public Use
  Company Number: US-ABBOTT-10P-163-0674450-00

PATIENT
  Sex: Male
  Weight: 103.97 kg

DRUGS (7)
  1. HUMIRA [Suspect]
     Indication: RHEUMATOID ARTHRITIS
  2. HUMIRA [Suspect]
     Indication: FELTY'S SYNDROME
  3. EPOGEN [Concomitant]
     Indication: FELTY'S SYNDROME
  4. EPOGEN [Concomitant]
     Indication: NEUTROPENIA
  5. ARAVA [Concomitant]
     Indication: PRODUCT USED FOR UNKNOWN INDICATION
  6. PREDNISONE [Concomitant]
     Indication: PRODUCT USED FOR UNKNOWN INDICATION
  7. FOLIC ACID [Concomitant]
     Indication: PRODUCT USED FOR UNKNOWN INDICATION

REACTIONS (4)
  - ARTHRALGIA [None]
  - DENTAL IMPLANTATION [None]
  - GAIT DISTURBANCE [None]
  - WHITE BLOOD CELL COUNT DECREASED [None]
